FAERS Safety Report 22601353 (Version 2)
Quarter: 2023Q2

REPORT INFORMATION
  Report Type: Spontaneous
  Country: JP (occurrence: JP)
  Receive Date: 20230614
  Receipt Date: 20230623
  Transmission Date: 20230721
  Serious: Yes (Other)
  Sender: FDA-Public Use
  Company Number: JP-UCBJ-CD202306362UCBPHAPROD

PATIENT
  Age: 76 Year
  Sex: Female

DRUGS (3)
  1. CIMZIA [Suspect]
     Active Substance: CERTOLIZUMAB PEGOL
     Indication: Rheumatoid arthritis
     Dosage: UNK
     Route: 058
     Dates: end: 20221116
  2. CISPLATIN [Concomitant]
     Active Substance: CISPLATIN
     Indication: Gallbladder cancer
     Dosage: UNK
  3. GEMCITABINE [Concomitant]
     Active Substance: GEMCITABINE
     Indication: Gallbladder cancer
     Dosage: UNK

REACTIONS (2)
  - Gallbladder cancer [Unknown]
  - Rheumatoid arthritis [Unknown]
